FAERS Safety Report 4392125-4 (Version None)
Quarter: 2004Q3

REPORT INFORMATION
  Report Type: 
  Country: None (occurrence: None)
  Receive Date: 20040702
  Receipt Date: 20040426
  Transmission Date: 20050211
  Serious: Yes (Other)
  Sender: FDA-Public Use
  Company Number: 2003UW16581

PATIENT
  Age: 66 Year
  Sex: Female
  Weight: 75.2971 kg

DRUGS (15)
  1. CRESTOR [Suspect]
     Indication: BLOOD CHOLESTEROL INCREASED
     Dates: start: 20031001
  2. ZETIA [Concomitant]
  3. GLUCOPHAGE [Concomitant]
  4. FISH OIL [Concomitant]
  5. PAXIL [Concomitant]
  6. POTASSIUM CHLORIDE [Concomitant]
  7. MAGNESIUM OXIDE [Concomitant]
  8. BETAPACE [Concomitant]
  9. NORVASC [Concomitant]
  10. COUMADIN [Concomitant]
  11. GLUCOTROL XL [Concomitant]
  12. FOLIC ACID [Concomitant]
  13. CALCIUM [Concomitant]
  14. MULTI-VITAMINS [Concomitant]
  15. GLUCOSAMINE [Concomitant]

REACTIONS (3)
  - ARTHRALGIA [None]
  - BLOOD GLUCOSE INCREASED [None]
  - WEIGHT INCREASED [None]
